FAERS Safety Report 12224373 (Version 1)
Quarter: 2016Q1

REPORT INFORMATION
  Report Type: Spontaneous
  Country: US (occurrence: US)
  Receive Date: 20160331
  Receipt Date: 20160331
  Transmission Date: 20160526
  Serious: Yes (Other)
  Sender: FDA-Public Use
  Company Number: PHEH2016US006846

PATIENT
  Sex: Female
  Weight: 71.66 kg

DRUGS (2)
  1. FEMARA [Suspect]
     Active Substance: LETROZOLE
     Indication: BREAST CANCER
     Dosage: 2.5 MG, QD
     Route: 048
  2. PALBOCICLIB [Suspect]
     Active Substance: PALBOCICLIB
     Indication: BREAST CANCER
     Dosage: 125 MG, UNK (ON DAY 1-21)
     Route: 048

REACTIONS (11)
  - Metastases to skin [Not Recovered/Not Resolved]
  - Haemoglobin decreased [Unknown]
  - Overweight [Unknown]
  - Blood pressure decreased [Unknown]
  - Limb discomfort [Recovering/Resolving]
  - Metastases to bone [Not Recovered/Not Resolved]
  - Chest discomfort [Recovering/Resolving]
  - Hypokinesia [Unknown]
  - Haemorrhage [Unknown]
  - Lymphoedema [Unknown]
  - Heart rate increased [Unknown]
